FAERS Safety Report 11941902 (Version 2)
Quarter: 2017Q4

REPORT INFORMATION
  Report Type: Spontaneous
  Country: US (occurrence: US)
  Receive Date: 20160124
  Receipt Date: 20171002
  Transmission Date: 20180320
  Serious: Yes (Hospitalization, Other)
  Sender: FDA-Public Use
  Company Number: US-DSJP-DSU-2015-133823

PATIENT

DRUGS (7)
  1. FUROSEMIDE. [Concomitant]
     Active Substance: FUROSEMIDE
     Indication: PRODUCT USED FOR UNKNOWN INDICATION
     Dosage: UNK
     Route: 048
     Dates: start: 2010
  2. HYDROCHLOROTHIAZIDE. [Concomitant]
     Active Substance: HYDROCHLOROTHIAZIDE
     Indication: PRODUCT USED FOR UNKNOWN INDICATION
     Dosage: 25 MG, QD
     Route: 048
     Dates: start: 2009, end: 2010
  3. BENICAR [Suspect]
     Active Substance: OLMESARTAN MEDOXOMIL
     Indication: HYPERTENSION
     Dosage: UNK
     Dates: start: 2009
  4. NORVASC [Concomitant]
     Active Substance: AMLODIPINE BESYLATE
     Indication: PRODUCT USED FOR UNKNOWN INDICATION
     Dosage: 5 MG, UNK
     Dates: start: 2011
  5. BENICAR [Suspect]
     Active Substance: OLMESARTAN MEDOXOMIL
     Dosage: 40 MG, QD
     Dates: start: 2005
  6. TOPROL XL [Concomitant]
     Active Substance: METOPROLOL SUCCINATE
     Indication: PRODUCT USED FOR UNKNOWN INDICATION
     Dosage: 150 MG, XL QD
     Route: 048
     Dates: start: 2007
  7. BENICAR [Suspect]
     Active Substance: OLMESARTAN MEDOXOMIL
     Dosage: 20 MG, QD

REACTIONS (18)
  - Helicobacter gastritis [Unknown]
  - Large intestinal polypectomy [Recovered/Resolved]
  - Soft tissue disorder [Not Recovered/Not Resolved]
  - Haemorrhoids [Unknown]
  - Gastric ulcer [Unknown]
  - Diverticulum intestinal [Unknown]
  - Malabsorption [Unknown]
  - Umbilical hernia [Unknown]
  - Irritable bowel syndrome [Not Recovered/Not Resolved]
  - Enteritis [Unknown]
  - Deep vein thrombosis [Unknown]
  - Diverticulitis [Unknown]
  - Acute kidney injury [Unknown]
  - Diabetes mellitus [Unknown]
  - Mucosa vesicle [Unknown]
  - Gastrooesophageal reflux disease [Unknown]
  - Impaired gastric emptying [Unknown]
  - Hiatus hernia [Unknown]

NARRATIVE: CASE EVENT DATE: 2005
